FAERS Safety Report 6021245-3 (Version None)
Quarter: 2008Q4

REPORT INFORMATION
  Report Type: 
  Country: None (occurrence: None)
  Receive Date: 20081229
  Receipt Date: 20080714
  Transmission Date: 20090506
  Serious: No
  Sender: FDA-Public Use
  Company Number: US-BAYER-200813096BCC

PATIENT
  Sex: Female
  Weight: 53 kg

DRUGS (7)
  1. ALEVE [Suspect]
     Indication: BACK PAIN
     Dosage: TOTAL DAILY DOSE: 440 MG  UNIT DOSE: 220 MG
     Route: 048
  2. FUROSEMIDE [Concomitant]
  3. KLOR-CON [Concomitant]
  4. XANAX [Concomitant]
  5. ALENDRONATE SODIUM [Concomitant]
  6. WALGREEN'S BRAND CALCIUM PLUS VITAMIN D [Concomitant]
  7. WALGREEN'S BRAND CENTRUM [Concomitant]

REACTIONS (2)
  - DECREASED APPETITE [None]
  - GASTRIC DISORDER [None]
